FAERS Safety Report 5237908-3 (Version None)
Quarter: 2007Q1

REPORT INFORMATION
  Report Type: 
  Country: None (occurrence: None)
  Receive Date: 20070214
  Receipt Date: 20070214
  Transmission Date: 20070707
  Serious: Yes (Other)
  Sender: FDA-Public Use
  Company Number: US-ABBOTT-07P-163-0357223-00

PATIENT
  Sex: Male
  Weight: 144 kg

DRUGS (14)
  1. SYNTHROID [Interacting]
     Indication: DRUG USE FOR UNKNOWN INDICATION
  2. LEXAPRO [Suspect]
     Indication: DRUG USE FOR UNKNOWN INDICATION
     Route: 048
  3. LAMOTRIGINE [Interacting]
     Indication: CONVULSION
     Route: 048
  4. ENOXAPARIN SODIUM [Interacting]
     Indication: DRUG USE FOR UNKNOWN INDICATION
  5. PENTOXIFYLLINE [Interacting]
     Indication: DRUG USE FOR UNKNOWN INDICATION
  6. ALENDRONATE SODIUM [Interacting]
     Indication: DRUG USE FOR UNKNOWN INDICATION
  7. ESOMEPRAZOLE MAGNESIUM [Interacting]
     Indication: DRUG USE FOR UNKNOWN INDICATION
  8. GABAPENTIN [Interacting]
     Indication: DRUG USE FOR UNKNOWN INDICATION
  9. FUROSEMIDE [Interacting]
     Indication: DRUG USE FOR UNKNOWN INDICATION
  10. TRAZODONE HCL [Interacting]
     Indication: DRUG USE FOR UNKNOWN INDICATION
  11. ACETYLSALICYLIC ACID SRT [Interacting]
     Indication: DRUG USE FOR UNKNOWN INDICATION
  12. CALCIUM [Interacting]
     Indication: DRUG USE FOR UNKNOWN INDICATION
  13. FOLIC ACID [Interacting]
     Indication: DRUG USE FOR UNKNOWN INDICATION
  14. ERGOCALCIFEROL [Interacting]
     Indication: DRUG USE FOR UNKNOWN INDICATION

REACTIONS (4)
  - ANTICONVULSANT DRUG LEVEL BELOW THERAPEUTIC [None]
  - CONVULSION [None]
  - DRUG INTERACTION [None]
  - PRESCRIBED OVERDOSE [None]
